FAERS Safety Report 25698647 (Version 1)
Quarter: 2025Q3

REPORT INFORMATION
  Report Type: Spontaneous
  Country: EU (occurrence: EU)
  Receive Date: 20250819
  Receipt Date: 20250819
  Transmission Date: 20251020
  Serious: Yes (Other)
  Sender: TAKEDA
  Company Number: EU-TAKEDA-2025TUS072477

PATIENT
  Age: 54 Year
  Sex: Female

DRUGS (7)
  1. MESALAMINE [Suspect]
     Active Substance: MESALAMINE
     Indication: Crohn^s disease
     Dosage: 2 GRAM, QD
  2. VANCOMYCIN [Concomitant]
     Active Substance: VANCOMYCIN
  3. METRONIDAZOLE [Concomitant]
     Active Substance: METRONIDAZOLE
  4. DIAZEPAM [Concomitant]
     Active Substance: DIAZEPAM
  5. VALPROIC ACID [Concomitant]
     Active Substance: VALPROIC ACID
     Dosage: 400 MILLIGRAM, BID
  6. METHYLPREDNISOLONE [Concomitant]
     Active Substance: METHYLPREDNISOLONE
  7. MANNITOL [Concomitant]
     Active Substance: MANNITOL

REACTIONS (1)
  - Posterior reversible encephalopathy syndrome [Unknown]
